FAERS Safety Report 18202320 (Version 1)
Quarter: 2020Q3

REPORT INFORMATION
  Report Type: Spontaneous
  Country: DE (occurrence: DE)
  Receive Date: 20200827
  Receipt Date: 20200827
  Transmission Date: 20201103
  Serious: Yes (Hospitalization)
  Sender: FDA-Public Use
  Company Number: DE-TEVA-2020-DE-1820171

PATIENT
  Age: 60 Year
  Sex: Female
  Weight: 117 kg

DRUGS (13)
  1. METAMIZOL [Concomitant]
     Active Substance: METAMIZOLE SODIUM
     Dosage: 2000 MILLIGRAM DAILY; 1?1?1?1
     Route: 048
  2. HYDROCHLOROTHIAZID [Suspect]
     Active Substance: HYDROCHLOROTHIAZIDE
     Dosage: 12.5 MILLIGRAM DAILY; 1?0?0?0
     Route: 048
  3. TORASEMID [Concomitant]
     Active Substance: TORSEMIDE
     Dosage: 10 MILLIGRAM DAILY; 1?0?0?0
     Route: 048
  4. RANITIDIN [Concomitant]
     Active Substance: RANITIDINE HYDROCHLORIDE
     Dosage: 300 MILLIGRAM DAILY; 0?0?0?1
     Route: 048
  5. EZETIMIB [Concomitant]
     Active Substance: EZETIMIBE
     Dosage: 10 MILLIGRAM DAILY; 1?0?0?0
     Route: 048
  6. DOMPERIDON [Suspect]
     Active Substance: DOMPERIDONE
     Dosage: 30 MILLIGRAM DAILY;  1?1?1?0
     Route: 048
  7. RIVAROXABAN [Concomitant]
     Active Substance: RIVAROXABAN
     Dosage: 20 MILLIGRAM DAILY; 1?0?0?0
     Route: 048
  8. INSULIN HUMAN [Suspect]
     Active Substance: INSULIN HUMAN
     Dosage: 1 IU, REQUIRED
     Route: 058
  9. ACETYLSALICYLSAURE [Concomitant]
     Active Substance: ASPIRIN
     Dosage: 100 MILLIGRAM DAILY;  0?1?0?0
     Route: 048
  10. CARVEDILOL. [Concomitant]
     Active Substance: CARVEDILOL
     Dosage: 12.5 MILLIGRAM DAILY; 1?0?0?0
     Route: 048
  11. HYDROCHLOROTHIAZID/TELMISARTAN [Suspect]
     Active Substance: HYDROCHLOROTHIAZIDE\TELMISARTAN
     Dosage: 1 DOSAGE FORMS DAILY; 12.5|40 MG, 1?0?0?0
     Route: 048
  12. HUMINSULIN BASAL NPH 300I.E. 100I.E./ML [Suspect]
     Active Substance: INSULIN HUMAN
     Dosage: 34 IU (INTERNATIONAL UNIT) DAILY; 1 IU, 0?0?0?34
     Route: 058
  13. COLECALCIFEROL (VITAMIN D) [Concomitant]
     Dosage: 1 DOSAGE FORMS DAILY; 1000 IU,1?0?0?0
     Route: 048

REACTIONS (7)
  - Medication error [Unknown]
  - Chest discomfort [Unknown]
  - Dyspnoea [Unknown]
  - Chest pain [Unknown]
  - Product prescribing error [Unknown]
  - Pain in extremity [Unknown]
  - Diabetic neuropathy [Unknown]
